FAERS Safety Report 8304610-0 (Version None)
Quarter: 2012Q2

REPORT INFORMATION
  Report Type: 
  Country: None (occurrence: None)
  Receive Date: 20120423
  Receipt Date: 20120411
  Transmission Date: 20120825
  Serious: Yes (Death, Life-Threatening, Hospitalization)
  Sender: FDA-Public Use
  Company Number: US-JNJFOC-20110611913

PATIENT
  Sex: Female
  Weight: 73.35 kg

DRUGS (41)
  1. DARUNAVIR ETHANOLATE [Suspect]
     Route: 048
     Dates: start: 20110329, end: 20110531
  2. ETRAVIRINE [Suspect]
     Indication: HIV INFECTION
     Route: 048
     Dates: start: 20110329, end: 20110531
  3. RALTEGRAVIR [Suspect]
     Route: 048
     Dates: start: 20110816, end: 20110904
  4. TRUVADA [Concomitant]
     Indication: HIV INFECTION
     Route: 048
     Dates: start: 20110329, end: 20110531
  5. DIOVAN HCT [Concomitant]
     Route: 048
     Dates: start: 20110805
  6. LAMIVUDINE [Concomitant]
     Indication: HIV INFECTION
     Route: 048
     Dates: start: 20110816
  7. PROVENTIL [Concomitant]
     Indication: DYSPNOEA
     Route: 055
     Dates: start: 20040224
  8. BACTRIM [Concomitant]
     Route: 048
     Dates: start: 20090918
  9. ULTRACET [Concomitant]
  10. METHADONE HCL [Concomitant]
     Dates: start: 20090818
  11. METHADONE HCL [Concomitant]
     Dates: start: 20110805
  12. DIOVAN HCT [Concomitant]
     Route: 048
     Dates: start: 20090922
  13. WESTCORT [Concomitant]
     Route: 061
     Dates: start: 20110617
  14. ALLEGRA [Concomitant]
     Route: 048
     Dates: start: 20110722
  15. DARUNAVIR ETHANOLATE [Suspect]
     Indication: HIV INFECTION
     Route: 048
     Dates: start: 20110816, end: 20110904
  16. ADVAIR DISKUS 100/50 [Concomitant]
     Route: 055
     Dates: start: 20091002
  17. ADVAIR DISKUS 100/50 [Concomitant]
     Route: 055
     Dates: start: 20070820
  18. NORVASC [Concomitant]
     Route: 048
     Dates: start: 20100921
  19. AMBIEN [Concomitant]
     Route: 048
     Dates: start: 20091020
  20. RITONAVIR [Suspect]
     Route: 048
     Dates: start: 20110816, end: 20110904
  21. IBUPROFEN [Concomitant]
     Route: 048
     Dates: start: 20070611
  22. STROVITE [Concomitant]
     Route: 048
     Dates: start: 20060707
  23. PROMETHAZINE W/ CODEINE [Concomitant]
     Indication: UPPER RESPIRATORY TRACT INFECTION
  24. RALTEGRAVIR [Suspect]
     Indication: HIV INFECTION
     Route: 048
     Dates: start: 20110329, end: 20110531
  25. VALTREX [Concomitant]
     Route: 048
     Dates: start: 20091019
  26. SEROQUEL [Concomitant]
     Dates: start: 20110311
  27. PERCOCET [Concomitant]
     Dates: start: 20101110
  28. LOTRISONE [Concomitant]
     Dates: start: 20110722
  29. MULTI-VITAMINS [Concomitant]
  30. STROVITE FORTE [Concomitant]
     Route: 048
     Dates: start: 20030821
  31. LOMOTIL [Concomitant]
     Indication: DIARRHOEA
     Route: 048
     Dates: start: 20100222
  32. METFORMIN HCL [Concomitant]
     Route: 048
     Dates: start: 20110502
  33. VALSARTAN [Concomitant]
  34. ABACAVIR [Suspect]
     Indication: HIV INFECTION
     Dates: start: 20110816
  35. RITONAVIR [Suspect]
     Indication: HIV INFECTION
     Route: 048
     Dates: start: 20110329, end: 20110531
  36. TRUVADA [Concomitant]
     Route: 048
     Dates: start: 20090922
  37. POTASSIUM CHLORIDE [Concomitant]
     Route: 048
     Dates: start: 20091123
  38. LAC-HYDRIN [Concomitant]
     Indication: DRY SKIN
     Route: 061
     Dates: start: 20110617
  39. LIPITOR [Concomitant]
     Route: 048
     Dates: start: 20110826
  40. ZITHROMAX [Concomitant]
     Dates: start: 20101123
  41. PROMETHAZINE W/ CODEINE [Concomitant]
     Indication: COUGH

REACTIONS (5)
  - UROSEPSIS [None]
  - HEPATIC FAILURE [None]
  - RENAL FAILURE ACUTE [None]
  - RASH [None]
  - SEPTIC SHOCK [None]
